FAERS Safety Report 5626906-3 (Version None)
Quarter: 2008Q1

REPORT INFORMATION
  Report Type: 
  Country: None (occurrence: None)
  Receive Date: 20080212
  Receipt Date: 20080204
  Transmission Date: 20080703
  Serious: Yes (Other)
  Sender: FDA-Public Use
  Company Number: GXKR2008GB01366

PATIENT
  Age: 46 Year
  Sex: Male

DRUGS (5)
  1. CYCLOSPORINE [Suspect]
     Indication: RENAL TRANSPLANT
  2. PREDNISOLONE [Suspect]
     Indication: RENAL TRANSPLANT
  3. MINOXIDIL (NGX)(MINOXIDIL) UNKNOWN [Suspect]
     Indication: RENAL TRANSPLANT
  4. AZATHIOPRINE [Concomitant]
  5. MYCOPHENOLATE MOFETIL [Concomitant]

REACTIONS (3)
  - FOLLICULITIS [None]
  - HYPERKERATOSIS [None]
  - SKIN NODULE [None]
